FAERS Safety Report 9725388 (Version 1)
Quarter: 2013Q4

REPORT INFORMATION
  Report Type: Spontaneous
  Country: US (occurrence: None)
  Receive Date: 20131129
  Receipt Date: 20131129
  Transmission Date: 20140711
  Serious: Yes (Other)
  Sender: FDA-Public Use
  Company Number: 2013-US-003797

PATIENT
  Age: 50 Year
  Sex: Female

DRUGS (2)
  1. XYREM (SODIUM OXYBATE) ORAL SOLUTION, 500MG/ML [Suspect]
     Indication: SOMNOLENCE
     Dates: start: 201101
  2. MODAFINIL [Suspect]

REACTIONS (6)
  - Drug hypersensitivity [None]
  - Blister [None]
  - Oral mucosal blistering [None]
  - Confusional state [None]
  - Decreased appetite [None]
  - Eye irritation [None]
